FAERS Safety Report 25572400 (Version 1)
Quarter: 2025Q3

REPORT INFORMATION
  Report Type: Spontaneous
  Country: JP (occurrence: JP)
  Receive Date: 20250717
  Receipt Date: 20250717
  Transmission Date: 20251021
  Serious: Yes (Other)
  Sender: COHERUS
  Company Number: US-COHERUS BIOSCIENCES, INC-2025-COH-JP000615

PATIENT

DRUGS (5)
  1. PEGFILGRASTIM [Suspect]
     Active Substance: PEGFILGRASTIM
     Indication: Breast cancer
     Route: 065
  2. PACLITAXEL [Suspect]
     Active Substance: PACLITAXEL
     Indication: Breast cancer
     Dosage: 175 MG/M2,DAY 1
     Route: 065
  3. CYCLOPHOSPHAMIDE [Suspect]
     Active Substance: CYCLOPHOSPHAMIDE
     Indication: Breast cancer
     Dosage: 600 MG/M2, Q2WEEKS
     Route: 065
  4. EPIRUBICIN [Suspect]
     Active Substance: EPIRUBICIN
     Indication: Breast cancer
     Dosage: 90 MG/M2, Q2WEEKS
     Route: 065
  5. DEXAMETHASONE [Suspect]
     Active Substance: DEXAMETHASONE
     Indication: Allergy prophylaxis
     Route: 065

REACTIONS (1)
  - Acute kidney injury [Unknown]
